FAERS Safety Report 12270205 (Version 1)
Quarter: 2016Q2

REPORT INFORMATION
  Report Type: Spontaneous
  Country: US (occurrence: None)
  Receive Date: 20160414
  Receipt Date: 20160414
  Transmission Date: 20160815
  Serious: Yes (Death)
  Sender: FDA-Public Use
  Company Number: None

PATIENT
  Age: 84 Year
  Sex: Male
  Weight: 93.5 kg

DRUGS (2)
  1. ASPIRIN, 81 MG [Suspect]
     Active Substance: ASPIRIN
     Indication: PRODUCT USED FOR UNKNOWN INDICATION
     Route: 048
  2. APIXABAN, 2.5 MG [Suspect]
     Active Substance: APIXABAN
     Indication: ATRIAL FIBRILLATION
     Route: 048

REACTIONS (2)
  - Fall [None]
  - Subdural haematoma [None]

NARRATIVE: CASE EVENT DATE: 20141017
